FAERS Safety Report 5771255-6 (Version None)
Quarter: 2008Q2

REPORT INFORMATION
  Report Type: 
  Country: None (occurrence: None)
  Receive Date: 20080613
  Receipt Date: 20080602
  Transmission Date: 20081010
  Serious: Yes (Hospitalization, Other)
  Sender: FDA-Public Use
  Company Number: CA-JNJFOC-20080206081

PATIENT
  Sex: Female
  Weight: 80 kg

DRUGS (9)
  1. REMICADE [Suspect]
     Route: 042
  2. REMICADE [Suspect]
     Route: 042
  3. REMICADE [Suspect]
     Route: 042
  4. REMICADE [Suspect]
     Indication: CROHN'S DISEASE
     Route: 042
  5. IMURAN [Concomitant]
  6. ADVAIR DISKUS 100/50 [Concomitant]
  7. MAXALT [Concomitant]
  8. RELPAX [Concomitant]
  9. COLACE [Concomitant]

REACTIONS (4)
  - PERICARDITIS [None]
  - POLYARTHRITIS [None]
  - RASH [None]
  - SURGERY [None]
